FAERS Safety Report 7624031-3 (Version None)
Quarter: 2011Q3

REPORT INFORMATION
  Report Type: 
  Country: None (occurrence: None)
  Receive Date: 20110719
  Receipt Date: 20110719
  Transmission Date: 20111222
  Serious: Yes (Hospitalization)
  Sender: FDA-Public Use
  Company Number: None

PATIENT
  Age: 53 Year
  Sex: Male
  Weight: 87.2 kg

DRUGS (1)
  1. MINOXIDIL [Suspect]
     Dosage: 10 MG EVERY DAY PO
     Route: 048
     Dates: start: 20110711, end: 20110713

REACTIONS (5)
  - TACHYCARDIA [None]
  - DYSPNOEA [None]
  - OEDEMA PERIPHERAL [None]
  - HEADACHE [None]
  - ELECTROCARDIOGRAM T WAVE ABNORMAL [None]
